FAERS Safety Report 7541113-5 (Version None)
Quarter: 2011Q2

REPORT INFORMATION
  Report Type: 
  Country: None (occurrence: None)
  Receive Date: 20110610
  Receipt Date: 20110608
  Transmission Date: 20111010
  Serious: Yes (Disabling)
  Sender: FDA-Public Use
  Company Number: GB-ALLERGAN-1107775US

PATIENT
  Age: 65 Year
  Sex: Male

DRUGS (4)
  1. BOTOX [Suspect]
     Indication: HYPERTONIC BLADDER
     Dosage: 100 UNITS, SINGLE
     Dates: start: 20100203, end: 20100203
  2. BOTOX [Suspect]
     Dosage: UNK UNITS, SINGLE
     Dates: start: 20080301, end: 20080301
  3. SIMVASTATIN [Concomitant]
     Dosage: 40 MG, UNK
     Route: 048
     Dates: start: 20080101
  4. RABEPRAZOLE SODIUM [Concomitant]
     Dosage: 20 MG, BID
     Route: 048
     Dates: start: 20090101

REACTIONS (1)
  - ATRIOVENTRICULAR BLOCK [None]
